FAERS Safety Report 23858289 (Version 2)
Quarter: 2024Q2

REPORT INFORMATION
  Report Type: Spontaneous
  Country: US (occurrence: US)
  Receive Date: 20240515
  Receipt Date: 20240621
  Transmission Date: 20240716
  Serious: Yes (Other)
  Sender: FDA-Public Use
  Company Number: US-PFIZER INC-202400058756

PATIENT
  Age: 53 Year
  Sex: Female
  Weight: 92.08 kg

DRUGS (7)
  1. OXBRYTA [Suspect]
     Active Substance: VOXELOTOR
     Indication: Double heterozygous sickling disorders
     Dosage: 500MG TABLET, THREE TABLETS ONCE A DAY BY MOUTH
     Route: 048
     Dates: start: 202403
  2. OXBRYTA [Suspect]
     Active Substance: VOXELOTOR
     Dosage: 1500MG ONCE A DAY
  3. LOSARTAN [Concomitant]
     Active Substance: LOSARTAN
     Indication: Blood pressure measurement
     Dosage: 50 MG, 1X/DAY
  4. LOSARTAN [Concomitant]
     Active Substance: LOSARTAN
     Dosage: 50 MG, 2X/DAY
  5. LEVOTHYROXINE [Concomitant]
     Active Substance: LEVOTHYROXINE\LEVOTHYROXINE SODIUM
     Dosage: 0.88 MILLIGRAMS, MONDAY TILL THURSDAY
  6. LEVOTHYROXINE [Concomitant]
     Active Substance: LEVOTHYROXINE\LEVOTHYROXINE SODIUM
     Dosage: 100 MILLIGRAMS, FRIDAYS AND SATURDAYS
  7. WELLBUTRIN [Concomitant]
     Active Substance: BUPROPION HYDROCHLORIDE
     Indication: Mood swings
     Dosage: 150 MG, 1X/DAY

REACTIONS (3)
  - Sickle cell anaemia with crisis [Recovered/Resolved]
  - Sickle cell anaemia with crisis [Recovered/Resolved]
  - Product dose omission issue [Unknown]

NARRATIVE: CASE EVENT DATE: 20240101
